FAERS Safety Report 9690858 (Version 1)
Quarter: 2013Q4

REPORT INFORMATION
  Report Type: Spontaneous
  Country: US (occurrence: None)
  Receive Date: 20131114
  Receipt Date: 20131114
  Transmission Date: 20140711
  Serious: Yes (Hospitalization)
  Sender: FDA-Public Use
  Company Number: None

PATIENT
  Age: 56 Year
  Sex: Female
  Weight: 112.95 kg

DRUGS (12)
  1. ANTARA [Concomitant]
  2. NORVASC [Concomitant]
  3. DEXILANT [Concomitant]
  4. JANUVIA [Suspect]
     Indication: TYPE 2 DIABETES MELLITUS
     Dates: start: 20110408
  5. SPIRIVA [Concomitant]
  6. FLONASE [Concomitant]
  7. ROBITUSSIN DC [Concomitant]
  8. LOSARTON 50MG [Concomitant]
  9. DALIRESP [Concomitant]
  10. VICODIN [Concomitant]
  11. MITRYPTOUNE 25MG [Concomitant]
  12. CITLOPERAM [Concomitant]

REACTIONS (1)
  - Pancreatitis [None]
